FAERS Safety Report 22342999 (Version 2)
Quarter: 2023Q2

REPORT INFORMATION
  Report Type: Spontaneous
  Country: DE (occurrence: DE)
  Receive Date: 20230519
  Receipt Date: 20230604
  Transmission Date: 20230721
  Serious: Yes (Other)
  Sender: FDA-Public Use
  Company Number: None

PATIENT
  Age: 66 Year
  Sex: Female
  Weight: 71 kg

DRUGS (1)
  1. BEMPEDOIC ACID [Suspect]
     Active Substance: BEMPEDOIC ACID
     Indication: Arteriosclerosis coronary artery
     Dosage: 180 MG, QD (1 TIME DAILY SCHEDULED INTAKE UNTIL 31.12.2023)
     Route: 048
     Dates: start: 20230327

REACTIONS (4)
  - Cardiac fibrillation [Not Recovered/Not Resolved]
  - Anxiety [Unknown]
  - Arthralgia [Recovered/Resolved]
  - Bone pain [Recovered/Resolved]

NARRATIVE: CASE EVENT DATE: 20230101
